FAERS Safety Report 9342253 (Version 1)
Quarter: 2013Q2

REPORT INFORMATION
  Report Type: Spontaneous
  Country: DE (occurrence: None)
  Receive Date: 20130607
  Receipt Date: 20130607
  Transmission Date: 20140414
  Serious: Yes (Hospitalization, Other)
  Sender: FDA-Public Use
  Company Number: 2013P1006712

PATIENT
  Age: 32 Year
  Sex: Male

DRUGS (4)
  1. LITHIUM [Suspect]
     Indication: OVERDOSE
  2. LORAZEPAM [Suspect]
     Indication: OVERDOSE
  3. SERTRALINE [Suspect]
     Indication: OVERDOSE
  4. QUETIAPINE [Suspect]
     Indication: OVERDOSE

REACTIONS (4)
  - Overdose [None]
  - Continuous haemodiafiltration [None]
  - Bezoar [None]
  - Treatment failure [None]
